FAERS Safety Report 17552042 (Version 1)
Quarter: 2020Q1

REPORT INFORMATION
  Report Type: Spontaneous
  Country: FR (occurrence: FR)
  Receive Date: 20200317
  Receipt Date: 20200317
  Transmission Date: 20200409
  Serious: Yes (Hospitalization)
  Sender: FDA-Public Use
  Company Number: FR-MYLANLABS-2020M1027539

PATIENT
  Age: 48 Year
  Sex: Male
  Weight: 63 kg

DRUGS (2)
  1. DEXAMETHASONE. [Suspect]
     Active Substance: DEXAMETHASONE
     Indication: SURGERY
     Dosage: 4 MILLIGRAM, TOTAL
     Route: 042
     Dates: start: 20190102, end: 20190102
  2. METRONIDAZOLE. [Suspect]
     Active Substance: METRONIDAZOLE
     Indication: SURGERY
     Dosage: 1000 MILLIGRAM, TOTAL
     Route: 042
     Dates: start: 20190102, end: 20190102

REACTIONS (1)
  - Anaphylactic shock [Recovered/Resolved]

NARRATIVE: CASE EVENT DATE: 20190102
